FAERS Safety Report 19155244 (Version 2)
Quarter: 2021Q2

REPORT INFORMATION
  Report Type: Report from Study
  Country: US (occurrence: US)
  Receive Date: 20210419
  Receipt Date: 20210526
  Transmission Date: 20210717
  Serious: No
  Sender: FDA-Public Use
  Company Number: NVSC2021US087438

PATIENT
  Sex: Female

DRUGS (1)
  1. COSENTYX [Suspect]
     Active Substance: SECUKINUMAB
     Indication: PSORIATIC ARTHROPATHY
     Dosage: UNK UNK, QMO
     Route: 058

REACTIONS (6)
  - Migraine [Recovered/Resolved]
  - Tendon pain [Unknown]
  - Myalgia [Unknown]
  - Arthralgia [Unknown]
  - Ligament pain [Unknown]
  - Pain in extremity [Unknown]
